FAERS Safety Report 6198611-9 (Version None)
Quarter: 2009Q2

REPORT INFORMATION
  Report Type: 
  Country: None (occurrence: None)
  Receive Date: 20090521
  Receipt Date: 20090512
  Transmission Date: 20091009
  Serious: Yes (Other)
  Sender: FDA-Public Use
  Company Number: US-JNJCH-2009013246

PATIENT
  Age: 29 Year
  Sex: Male
  Weight: 65.8 kg

DRUGS (1)
  1. ROGAINE [Suspect]
     Indication: ALOPECIA
     Dosage: TEXT:1/2 CAPFUL TWICE DAILY
     Route: 061

REACTIONS (2)
  - HYPERSENSITIVITY [None]
  - SWELLING FACE [None]
